FAERS Safety Report 9476730 (Version 1)
Quarter: 2013Q3

REPORT INFORMATION
  Report Type: Spontaneous
  Country: US (occurrence: US)
  Receive Date: 20130826
  Receipt Date: 20130826
  Transmission Date: 20140515
  Serious: No
  Sender: FDA-Public Use
  Company Number: US-BRISTOL-MYERS SQUIBB COMPANY-17409483

PATIENT
  Age: 47 Year
  Sex: Female

DRUGS (1)
  1. KENALOG-40 INJ [Suspect]
     Indication: RHEUMATOID ARTHRITIS
     Route: 030
     Dates: start: 201201

REACTIONS (2)
  - Injection site atrophy [Not Recovered/Not Resolved]
  - Muscular weakness [Unknown]
